FAERS Safety Report 20861844 (Version 1)
Quarter: 2022Q2

REPORT INFORMATION
  Report Type: Spontaneous
  Country: US (occurrence: None)
  Receive Date: 20220520
  Receipt Date: 20220520
  Transmission Date: 20220721
  Serious: Yes (unspecified)
  Sender: FDA-Public Use
  Company Number: None

PATIENT
  Age: 37 Year
  Sex: Male
  Weight: 58.5 kg

DRUGS (1)
  1. TRIKAFTA [Suspect]
     Active Substance: ELEXACAFTOR\IVACAFTOR\TEZACAFTOR
     Indication: Cystic fibrosis
     Dosage: OTHER QUANTITY : 3 TABLET(S);?OTHER FREQUENCY : 2 AM, 1 PM;?
     Route: 048
     Dates: start: 20191124

REACTIONS (4)
  - Depression [None]
  - Anxiety [None]
  - Self-injurious ideation [None]
  - Mental status changes [None]

NARRATIVE: CASE EVENT DATE: 20211201
